FAERS Safety Report 9524912 (Version 1)
Quarter: 2013Q1

REPORT INFORMATION
  Report Type: Spontaneous
  Country: US (occurrence: None)
  Receive Date: 20130314
  Receipt Date: 20130314
  Transmission Date: 20140127
  Serious: No
  Sender: FDA-Public Use
  Company Number: 1301USA001955

PATIENT
  Age: 55 Year
  Sex: Female
  Weight: 79.4 kg

DRUGS (6)
  1. VICTRELIS (BOCEPREVIR) CAPSULE, 200MG [Suspect]
     Indication: HEPATITIS C
     Dosage: 4 CAPSULES, TID, ORAL
     Route: 048
  2. RIBASPHERE [Suspect]
     Indication: HEPATITIS C
  3. PEGASYS [Suspect]
     Indication: HEPATITIS C
     Route: 058
  4. XANAX (ALPRAZOLAM) TABLET, 0.25 MG [Concomitant]
  5. TYLENOL (ACETAMINOPHEN) TABLET, 650 MG [Concomitant]
  6. PROCRIT [Concomitant]

REACTIONS (4)
  - Rash pruritic [None]
  - Rash erythematous [None]
  - Dysgeusia [None]
  - Red blood cell count decreased [None]
